FAERS Safety Report 21047820 (Version 2)
Quarter: 2022Q4

REPORT INFORMATION
  Report Type: Spontaneous
  Country: IT (occurrence: IT)
  Receive Date: 20220706
  Receipt Date: 20221220
  Transmission Date: 20230112
  Serious: Yes (Other)
  Sender: FDA-Public Use
  Company Number: IT-SAMSUNG BIOEPIS-SB-2022-16027

PATIENT
  Age: 41 Year
  Sex: Female

DRUGS (4)
  1. TRASTUZUMAB [Suspect]
     Active Substance: TRASTUZUMAB
     Indication: Hepatic cancer
     Dosage: UNKNOWN, SYSTEMIC ROUTE
     Route: 065
  2. BEVACIZUMAB [Suspect]
     Active Substance: BEVACIZUMAB
     Indication: Metastases to liver
     Dosage: UNKNOWN
     Route: 065
  3. BEVACIZUMAB [Suspect]
     Active Substance: BEVACIZUMAB
     Indication: Hepatic cancer
  4. FLUOROURACIL [Suspect]
     Active Substance: FLUOROURACIL
     Indication: Hepatic cancer
     Dosage: LIVER ARTERIAL INFUSION CHEMOTHERAPY (LAIC)
     Route: 065

REACTIONS (6)
  - Hepatic artery thrombosis [Unknown]
  - Device related thrombosis [Not Recovered/Not Resolved]
  - Deep vein thrombosis [Recovered/Resolved]
  - Hepatic cancer [Unknown]
  - Therapeutic embolisation [Unknown]
  - Off label use [Unknown]

NARRATIVE: CASE EVENT DATE: 20170101
